FAERS Safety Report 4586643-3 (Version None)
Quarter: 2005Q1

REPORT INFORMATION
  Report Type: 
  Country: None (occurrence: None)
  Receive Date: 20050218
  Receipt Date: 20040910
  Transmission Date: 20050727
  Serious: No
  Sender: FDA-Public Use
  Company Number: US-BRISTOL-MYERS SQUIBB COMPANY-12700241

PATIENT
  Age: 46 Year
  Sex: Female
  Weight: 73 kg

DRUGS (5)
  1. TAXOL [Suspect]
     Indication: OVARIAN CANCER
     Route: 042
     Dates: start: 20040902, end: 20040902
  2. PARAPLATIN [Suspect]
     Indication: OVARIAN CANCER
     Route: 042
     Dates: start: 20040902, end: 20040902
  3. BENADRYL [Concomitant]
     Indication: PREMEDICATION
  4. VIOXX [Concomitant]
  5. MULTIVITAMIN [Concomitant]

REACTIONS (1)
  - PARAESTHESIA [None]
